FAERS Safety Report 7677492-8 (Version None)
Quarter: 2011Q3

REPORT INFORMATION
  Report Type: 
  Country: None (occurrence: None)
  Receive Date: 20110811
  Receipt Date: 20110801
  Transmission Date: 20111222
  Serious: Yes (Hospitalization)
  Sender: FDA-Public Use
  Company Number: US-JNJFOC-20081003779

PATIENT
  Sex: Male
  Weight: 50.5 kg

DRUGS (7)
  1. ELAVIL [Concomitant]
  2. ANTIBIOTIC [Concomitant]
  3. REMICADE [Suspect]
     Route: 042
     Dates: start: 20071205
  4. METRONIDAZOLE [Concomitant]
  5. REMICADE [Suspect]
     Indication: COLITIS ULCERATIVE
     Route: 042
  6. REMICADE [Suspect]
     Dosage: TOTAL 8 DOSES
     Route: 042
     Dates: start: 20080911
  7. LEVAQUIN [Concomitant]

REACTIONS (2)
  - CLOSTRIDIAL INFECTION [None]
  - COLITIS ULCERATIVE [None]
